FAERS Safety Report 6306745-0 (Version None)
Quarter: 2009Q3

REPORT INFORMATION
  Report Type: 
  Country: None (occurrence: None)
  Receive Date: 20090812
  Receipt Date: 20090807
  Transmission Date: 20100115
  Serious: No
  Sender: FDA-Public Use
  Company Number: US-B.I. PHARMACEUTICALS,INC./RIDGEFIELD-2009-BP-09333BP

PATIENT
  Age: 78 Year
  Sex: Female

DRUGS (8)
  1. MOBIC [Suspect]
     Indication: ARTHRITIS
     Dosage: 15 MG
     Route: 048
     Dates: start: 20080101, end: 20080101
  2. HTN MEDS [Concomitant]
  3. BLOOD THINNER [Concomitant]
  4. OSTEOPOROSIS MEDICATION [Concomitant]
  5. MUSCLE SPASM MEDICATION [Concomitant]
  6. OTHER PAIN MEDICATIONS [Concomitant]
  7. SLEEPING AID [Concomitant]
  8. BOWEL MEDICATIONS [Concomitant]

REACTIONS (1)
  - DRUG INEFFECTIVE [None]
